FAERS Safety Report 6335925-3 (Version None)
Quarter: 2009Q3

REPORT INFORMATION
  Report Type: 
  Country: None (occurrence: None)
  Receive Date: 20090828
  Receipt Date: 20090828
  Transmission Date: 20100115
  Serious: Yes (Life-Threatening, Hospitalization)
  Sender: FDA-Public Use
  Company Number: None

PATIENT
  Sex: Female
  Weight: 94.9 kg

DRUGS (3)
  1. TISSEEL VH KIT [Suspect]
     Indication: HAEMOSTASIS
     Dosage: 10 ML 4 ML X 1 X1 060 060
     Dates: start: 20090312
  2. TISSEEL VH KIT [Suspect]
     Indication: HAEMOSTASIS
     Dosage: 10 ML 4 ML X 1 X1 060 060
     Dates: start: 20090319
  3. THROMBIN NOS [Suspect]
     Indication: HAEMOSTASIS
     Dosage: 3800 UNITS X1 060
     Dates: start: 20090415

REACTIONS (5)
  - BILOMA [None]
  - CATHETER SITE HAEMORRHAGE [None]
  - COAGULOPATHY [None]
  - FACTOR V INHIBITION [None]
  - WOUND SECRETION [None]
